FAERS Safety Report 18006677 (Version 1)
Quarter: 2020Q3

REPORT INFORMATION
  Report Type: Spontaneous
  Country: CN (occurrence: CN)
  Receive Date: 20200710
  Receipt Date: 20200710
  Transmission Date: 20201103
  Serious: Yes (Other)
  Sender: FDA-Public Use
  Company Number: CN-PFIZER INC-2020247597

PATIENT
  Age: 47 Year
  Sex: Male

DRUGS (2)
  1. ZAVICEFTA [Interacting]
     Active Substance: AVIBACTAM SODIUM\CEFTAZIDIME
     Indication: INFECTION
     Dosage: 1 DF, 2X/DAY
  2. ZYVOX [Suspect]
     Active Substance: LINEZOLID
     Indication: INFECTION
     Dosage: 0.5 DF, 1X/DAY

REACTIONS (1)
  - Drug interaction [Recovered/Resolved]
